FAERS Safety Report 18418922 (Version 1)
Quarter: 2020Q4

REPORT INFORMATION
  Report Type: Spontaneous
  Country: US (occurrence: US)
  Receive Date: 20201023
  Receipt Date: 20201023
  Transmission Date: 20210114
  Serious: Yes (Death, Life-Threatening, Hospitalization)
  Sender: FDA-Public Use
  Company Number: US-STRIDES ARCOLAB LIMITED-2020SP012831

PATIENT
  Age: 20 Year
  Sex: Male

DRUGS (11)
  1. PREDNISOLONE. [Suspect]
     Active Substance: PREDNISOLONE
     Indication: DEAFNESS NEUROSENSORY
     Dosage: 60 MILLIGRAM, SINGLE DOSE
     Route: 048
  2. TACROLIMUS. [Suspect]
     Active Substance: TACROLIMUS
     Dosage: UNK
     Route: 065
  3. PREDNISOLONE. [Suspect]
     Active Substance: PREDNISOLONE
     Dosage: UNK, FOLLOWED BY 12 DAY TAPER
     Route: 065
  4. TACROLIMUS. [Suspect]
     Active Substance: TACROLIMUS
     Indication: INTESTINAL TRANSPLANT
     Dosage: UNK
     Route: 065
  5. VALGANCICLOVIR. [Concomitant]
     Active Substance: VALGANCICLOVIR
     Dosage: 900 MILLIGRAM
     Route: 065
  6. FILGRASTIM [Concomitant]
     Active Substance: FILGRASTIM
     Indication: NEUTROPENIA
     Dosage: UNK
     Route: 065
  7. MYCOPHENOLATE MOFETIL. [Suspect]
     Active Substance: MYCOPHENOLATE MOFETIL
     Dosage: 1000 MILLIGRAM, BID
     Route: 065
  8. ALEMTUZUMAB [Suspect]
     Active Substance: ALEMTUZUMAB
     Indication: INTESTINAL TRANSPLANT
     Dosage: UNK
     Route: 065
  9. MYCOPHENOLATE MOFETIL. [Suspect]
     Active Substance: MYCOPHENOLATE MOFETIL
     Indication: INTESTINAL TRANSPLANT
     Dosage: UNK
     Route: 065
  10. METHYLPREDNISOLONE. [Suspect]
     Active Substance: METHYLPREDNISOLONE
     Indication: INTESTINAL TRANSPLANT
     Dosage: UNK
     Route: 065
  11. VALGANCICLOVIR. [Concomitant]
     Active Substance: VALGANCICLOVIR
     Indication: ANTIVIRAL PROPHYLAXIS
     Dosage: UNK
     Route: 065

REACTIONS (23)
  - Progressive multifocal leukoencephalopathy [Unknown]
  - Hyporeflexia [Unknown]
  - Facial paresis [Unknown]
  - Muscular weakness [Unknown]
  - Urinary incontinence [Unknown]
  - Speech disorder [Unknown]
  - Respiratory distress [Unknown]
  - Off label use [Unknown]
  - Productive cough [Unknown]
  - Tinnitus [Unknown]
  - Osteopenia [Unknown]
  - Headache [Unknown]
  - Decreased appetite [Unknown]
  - JC virus infection [Unknown]
  - Vomiting [Unknown]
  - Weight decreased [Unknown]
  - Dysphagia [Unknown]
  - Drug ineffective [Unknown]
  - Neurological decompensation [Fatal]
  - Deafness neurosensory [Not Recovered/Not Resolved]
  - Deafness [Unknown]
  - Pyrexia [Unknown]
  - Pleocytosis [Unknown]
